FAERS Safety Report 22309269 (Version 2)
Quarter: 2023Q2

REPORT INFORMATION
  Report Type: Spontaneous
  Country: DE (occurrence: DE)
  Receive Date: 20230511
  Receipt Date: 20230608
  Transmission Date: 20230722
  Serious: No
  Sender: FDA-Public Use
  Company Number: DE-PFIZER INC-202300180802

PATIENT
  Age: 30 Year
  Sex: Male

DRUGS (1)
  1. DALTEPARIN SODIUM [Suspect]
     Active Substance: DALTEPARIN SODIUM
     Dosage: UNK

REACTIONS (5)
  - Device physical property issue [Unknown]
  - Needle issue [Unknown]
  - Injection site pain [Unknown]
  - Device difficult to use [Unknown]
  - Poor quality device used [Unknown]
